FAERS Safety Report 6522347-5 (Version None)
Quarter: 2009Q4

REPORT INFORMATION
  Report Type: 
  Country: None (occurrence: None)
  Receive Date: 20091230
  Receipt Date: 20091222
  Transmission Date: 20100525
  Serious: Yes (Hospitalization)
  Sender: FDA-Public Use
  Company Number: B0621876A

PATIENT
  Sex: Male

DRUGS (2)
  1. NEODUPLAMOX [Suspect]
     Dosage: 2G PER DAY
     Route: 048
     Dates: start: 20091124, end: 20091125
  2. ZITHROMAX [Suspect]
     Dosage: 500MG PER DAY
     Route: 048
     Dates: start: 20091121, end: 20091123

REACTIONS (3)
  - PRURITUS [None]
  - SKIN REACTION [None]
  - URTICARIA [None]
